FAERS Safety Report 15260245 (Version 1)
Quarter: 2018Q3

REPORT INFORMATION
  Report Type: Spontaneous
  Country: US (occurrence: US)
  Receive Date: 20180809
  Receipt Date: 20180809
  Transmission Date: 20181010
  Serious: No
  Sender: FDA-Public Use
  Company Number: US-PFIZER INC-2018319516

PATIENT
  Age: 10 Year
  Sex: Male

DRUGS (1)
  1. GENOTROPIN [Suspect]
     Active Substance: SOMATROPIN
     Dosage: 2.6 MG, 6 DAYS A WEEK

REACTIONS (7)
  - Insulin-like growth factor increased [Unknown]
  - High density lipoprotein increased [Unknown]
  - Granulocyte count increased [Unknown]
  - Blood insulin increased [Unknown]
  - Blood potassium increased [Unknown]
  - Blood immunoglobulin A increased [Unknown]
  - Weight increased [Unknown]
